FAERS Safety Report 10956897 (Version 1)
Quarter: 2015Q1

REPORT INFORMATION
  Report Type: Spontaneous
  Country: CN (occurrence: None)
  Receive Date: 20150324
  Receipt Date: 20150324
  Transmission Date: 20150721
  Serious: Yes (Other)
  Sender: FDA-Public Use
  Company Number: CN2015GSK034946

PATIENT

DRUGS (3)
  1. HEPSERA [Suspect]
     Active Substance: ADEFOVIR DIPIVOXIL
     Indication: HEPATITIS B
     Route: 048
  2. HEPTODIN [Suspect]
     Active Substance: LAMIVUDINE
     Indication: HEPATITIS C
     Route: 048
  3. ENTECAVIR TABLETS (ENTECAVIR) TABLET [Concomitant]

REACTIONS (2)
  - Viral mutation identified [None]
  - Oesophageal haemorrhage [None]
